FAERS Safety Report 5304867-4 (Version None)
Quarter: 2007Q2

REPORT INFORMATION
  Report Type: 
  Country: None (occurrence: None)
  Receive Date: 20070423
  Receipt Date: 20070414
  Transmission Date: 20071010
  Serious: Yes (Other)
  Sender: FDA-Public Use
  Company Number: CA-ABBOTT-07P-028-0362045-00

PATIENT
  Sex: Male

DRUGS (4)
  1. LIPIDIL EZ [Suspect]
     Indication: HIGH DENSITY LIPOPROTEIN DECREASED
     Route: 048
     Dates: start: 20060101, end: 20070222
  2. LIPIDIL EZ [Suspect]
     Dosage: LIPIDIL MICRO
     Route: 048
     Dates: start: 20000101, end: 20030101
  3. LIPIDIL EZ [Suspect]
     Dosage: LIPIDIL SUPRA
     Route: 048
     Dates: start: 20030101, end: 20060101
  4. LIPIDIL EZ [Suspect]
     Route: 048
     Dates: start: 20060101, end: 20060101

REACTIONS (4)
  - ASPARTATE AMINOTRANSFERASE INCREASED [None]
  - BLOOD CREATINE PHOSPHOKINASE INCREASED [None]
  - BLOOD LACTATE DEHYDROGENASE INCREASED [None]
  - PAIN [None]
